FAERS Safety Report 14323689 (Version 1)
Quarter: 2017Q4

REPORT INFORMATION
  Report Type: Spontaneous
  Country: TR (occurrence: TR)
  Receive Date: 20171226
  Receipt Date: 20171226
  Transmission Date: 20180321
  Serious: Yes (Hospitalization, Other)
  Sender: FDA-Public Use
  Company Number: TR-ASTELLAS-2017US054993

PATIENT
  Age: 30 Year
  Sex: Female

DRUGS (2)
  1. TACROLIMUS. [Suspect]
     Active Substance: TACROLIMUS
     Indication: APLASTIC ANAEMIA
     Dosage: UNK, UNKNOWN FREQ.
     Route: 065
  2. ATG /02082702/ [Suspect]
     Active Substance: EQUINE THYMOCYTE IMMUNE GLOBULIN
     Indication: APLASTIC ANAEMIA
     Dosage: UNK, UNKNOWN FREQ.
     Route: 065

REACTIONS (4)
  - Off label use [Unknown]
  - Pancytopenia [None]
  - Serum sickness [Recovered/Resolved]
  - Hypersensitivity vasculitis [None]
